FAERS Safety Report 21849085 (Version 1)
Quarter: 2023Q1

REPORT INFORMATION
  Report Type: Report from Study
  Country: US (occurrence: US)
  Receive Date: 20230111
  Receipt Date: 20230111
  Transmission Date: 20230418
  Serious: No
  Sender: FDA-Public Use
  Company Number: US-ABBVIE-4266256

PATIENT
  Age: 65 Year
  Sex: Female

DRUGS (2)
  1. VENCLEXTA [Suspect]
     Active Substance: VENETOCLAX
     Indication: Acute myeloid leukaemia
     Dosage: 100 MG;?DOSE : TAKE 2 TABLETS BY MOUTH DAILY WITH FOOD AND WATER FOR 7 DAYS ON THEN 21 DAYS OFF
     Route: 048
     Dates: start: 20221130
  2. VENCLEXTA [Suspect]
     Active Substance: VENETOCLAX
     Indication: Acute myeloid leukaemia
     Dosage: DOSE : TAKE 2 TABLETS BY MOUTH DAILY WITH FOOD AND WATER FOR 7 DAYS ON THEN 21 DAYS OFF
     Route: 048

REACTIONS (1)
  - Product prescribing error [Recovered/Resolved]

NARRATIVE: CASE EVENT DATE: 20230102
